FAERS Safety Report 6807484-X (Version None)
Quarter: 2010Q2

REPORT INFORMATION
  Report Type: 
  Country: None (occurrence: None)
  Receive Date: 20100629
  Receipt Date: 20081029
  Transmission Date: 20101027
  Serious: No
  Sender: FDA-Public Use
  Company Number: US-PFIZER INC-2008079208

PATIENT
  Sex: Male
  Weight: 77.11 kg

DRUGS (6)
  1. VIAGRA [Suspect]
     Indication: ERECTILE DYSFUNCTION
     Dates: start: 20050101
  2. ADVAIR DISKUS 100/50 [Concomitant]
  3. CRESTOR [Concomitant]
  4. ACETYLSALICYLIC ACID [Concomitant]
  5. PRILOSEC [Concomitant]
  6. FISH OIL [Concomitant]

REACTIONS (3)
  - DRUG INEFFECTIVE [None]
  - FLUSHING [None]
  - HEADACHE [None]
